FAERS Safety Report 21631326 (Version 3)
Quarter: 2023Q2

REPORT INFORMATION
  Report Type: Spontaneous
  Country: DE (occurrence: DE)
  Receive Date: 20221123
  Receipt Date: 20230417
  Transmission Date: 20230721
  Serious: Yes (Other)
  Sender: FDA-Public Use
  Company Number: DE-ROCHE-2208865

PATIENT
  Age: 25 Year
  Sex: Female

DRUGS (2)
  1. LEVOFLOXACIN [Suspect]
     Active Substance: LEVOFLOXACIN
     Indication: Product used for unknown indication
     Dosage: 500 MG
     Route: 065
     Dates: start: 20221031, end: 20221103
  2. FLUTICASONE PROPIONATE\FORMOTEROL FUMARATE [Concomitant]
     Active Substance: FLUTICASONE PROPIONATE\FORMOTEROL FUMARATE
     Indication: Product used for unknown indication
     Dosage: ROUTE OF ADMINISTRATION: RESPIRATORY (INHALATION)

REACTIONS (19)
  - Urinary tract infection bacterial [Recovered/Resolved]
  - Gait disturbance [Recovered/Resolved]
  - Road traffic accident [Unknown]
  - Cystitis noninfective [Recovered/Resolved]
  - Cystitis noninfective [Unknown]
  - Urinary incontinence [Not Recovered/Not Resolved]
  - Infusion related reaction [Unknown]
  - Urinary tract infection [Recovered/Resolved]
  - Dysuria [Recovered/Resolved]
  - COVID-19 [Recovered/Resolved]
  - Impaired healing [Recovering/Resolving]
  - Fatigue [Recovered/Resolved]
  - Pain [Recovered/Resolved]
  - Wound complication [Recovering/Resolving]
  - Headache [Recovered/Resolved]
  - Dyspnoea [Recovered/Resolved]
  - Off label use [Unknown]
  - Mood swings [Not Recovered/Not Resolved]
  - Muscle spasticity [Not Recovered/Not Resolved]

NARRATIVE: CASE EVENT DATE: 20180502
